FAERS Safety Report 9180294 (Version 2)
Quarter: 2013Q2

REPORT INFORMATION
  Report Type: Spontaneous
  Country: ZA (occurrence: ZA)
  Receive Date: 20130322
  Receipt Date: 20130412
  Transmission Date: 20140414
  Serious: Yes (Hospitalization, Other)
  Sender: FDA-Public Use
  Company Number: ZA-009507513-1303ZAF007930

PATIENT
  Age: 28 Year
  Sex: Female

DRUGS (1)
  1. ESMERON [Suspect]
     Indication: MUSCLE RELAXANT THERAPY
     Dosage: UNK
     Route: 042
     Dates: start: 20130313, end: 2013

REACTIONS (3)
  - Laryngeal oedema [Recovered/Resolved]
  - Laryngeal oedema [Recovered/Resolved]
  - Vocal cord paralysis [Unknown]
